FAERS Safety Report 15940464 (Version 2)
Quarter: 2019Q2

REPORT INFORMATION
  Report Type: Spontaneous
  Country: US (occurrence: US)
  Receive Date: 20190208
  Receipt Date: 20190415
  Transmission Date: 20190711
  Serious: Yes (Other)
  Sender: FDA-Public Use
  Company Number: US-ASTRAZENECA-2018SF34778

PATIENT
  Age: 815 Month
  Sex: Female
  Weight: 77.1 kg

DRUGS (24)
  1. PRILOSEC [Suspect]
     Active Substance: OMEPRAZOLE MAGNESIUM
     Indication: GASTROOESOPHAGEAL REFLUX DISEASE
     Dosage: 20.0MG UNKNOWN
     Route: 048
     Dates: start: 20180917
  2. PREVACID [Suspect]
     Active Substance: LANSOPRAZOLE
     Indication: GASTROOESOPHAGEAL REFLUX DISEASE
     Route: 065
  3. DOXYCYCLINE. [Concomitant]
     Active Substance: DOXYCYCLINE
     Dates: start: 20181016
  4. GABAPENTIN. [Concomitant]
     Active Substance: GABAPENTIN
     Dosage: 300.0MG UNKNOWN
     Route: 048
     Dates: start: 20180917
  5. JANUVIA [Concomitant]
     Active Substance: SITAGLIPTIN PHOSPHATE
     Dosage: 100.0MG UNKNOWN
     Route: 048
     Dates: start: 20180917
  6. MAGNESIUM CITRATE. [Concomitant]
     Active Substance: MAGNESIUM CITRATE
     Indication: CONSTIPATION
     Dates: start: 20180910
  7. PRILOSEC [Suspect]
     Active Substance: OMEPRAZOLE MAGNESIUM
     Indication: GASTROOESOPHAGEAL REFLUX DISEASE
     Dosage: 20.0MG UNKNOWN
     Route: 048
     Dates: start: 20100208, end: 20100825
  8. HYDROCODONE [Concomitant]
     Active Substance: HYDROCODONE
     Dosage: 10.0MG UNKNOWN
     Dates: start: 20181006
  9. PREDNISONE. [Concomitant]
     Active Substance: PREDNISONE
     Dosage: 20.0MG UNKNOWN
     Route: 048
     Dates: start: 20181001
  10. NEXIUM [Suspect]
     Active Substance: ESOMEPRAZOLE MAGNESIUM
     Indication: GASTROOESOPHAGEAL REFLUX DISEASE
     Route: 048
     Dates: start: 20100905, end: 20110123
  11. MEDROL [Concomitant]
     Active Substance: METHYLPREDNISOLONE
     Dates: start: 20181003
  12. ALBUTEROL. [Concomitant]
     Active Substance: ALBUTEROL
     Dosage: 0.5MG UNKNOWN
     Dates: start: 20181009
  13. ONDANSETRON [Concomitant]
     Active Substance: ONDANSETRON
     Dosage: 8.0MG EVERY 8 - 12 HOURS
     Dates: start: 20181009
  14. PRILOSEC [Suspect]
     Active Substance: OMEPRAZOLE MAGNESIUM
     Indication: GASTROOESOPHAGEAL REFLUX DISEASE
     Dosage: GENERIC20.0MG UNKNOWN
     Route: 065
     Dates: start: 20180103, end: 20180621
  15. CARVEDIOL [Concomitant]
     Active Substance: CARVEDILOL
     Route: 048
     Dates: start: 20180917
  16. COLACE [Concomitant]
     Active Substance: DOCUSATE SODIUM
     Dates: start: 20180723
  17. LANTUS [Concomitant]
     Active Substance: INSULIN GLARGINE
     Dosage: INJJECT 3 TIMES
     Route: 058
  18. PRILOSEC [Suspect]
     Active Substance: OMEPRAZOLE MAGNESIUM
     Indication: GASTROOESOPHAGEAL REFLUX DISEASE
     Route: 048
  19. ATORVASTATIN [Concomitant]
     Active Substance: ATORVASTATIN
     Dosage: 20.0MG UNKNOWN
     Dates: start: 20180917
  20. NEXIUM [Suspect]
     Active Substance: ESOMEPRAZOLE MAGNESIUM
     Indication: GASTROOESOPHAGEAL REFLUX DISEASE
     Route: 048
  21. METFORMIN [Concomitant]
     Active Substance: METFORMIN HYDROCHLORIDE
     Dates: start: 20181015
  22. PREVACID [Suspect]
     Active Substance: LANSOPRAZOLE
     Indication: GASTROOESOPHAGEAL REFLUX DISEASE
     Route: 065
     Dates: start: 20090905, end: 20100108
  23. CEFDINIR. [Concomitant]
     Active Substance: CEFDINIR
     Dosage: 300.0MG UNKNOWN
     Dates: start: 20181001
  24. ELIQUIS [Concomitant]
     Active Substance: APIXABAN
     Dosage: 2.5MG UNKNOWN
     Route: 048
     Dates: start: 20180917

REACTIONS (2)
  - Chronic kidney disease [Not Recovered/Not Resolved]
  - Renal failure [Unknown]

NARRATIVE: CASE EVENT DATE: 201802
